FAERS Safety Report 5124440-0 (Version None)
Quarter: 2006Q4

REPORT INFORMATION
  Report Type: 
  Country: None (occurrence: None)
  Receive Date: 20060816
  Receipt Date: 20060619
  Transmission Date: 20070319
  Serious: No
  Sender: FDA-Public Use
  Company Number: US200606004258

PATIENT
  Age: 53 Year
  Sex: Male

DRUGS (2)
  1. CIALIS [Suspect]
     Indication: ERECTILE DYSFUNCTION
     Dosage: 10 + 20 MG, OTHER, UNK
     Dates: start: 20060612, end: 20060613
  2. CIALIS [Suspect]
     Indication: ERECTILE DYSFUNCTION
     Dosage: 10 + 20 MG, OTHER, UNK
     Dates: start: 20060616

REACTIONS (1)
  - THERAPEUTIC RESPONSE DECREASED [None]
